FAERS Safety Report 19146759 (Version 6)
Quarter: 2022Q3

REPORT INFORMATION
  Report Type: Report from Study
  Country: JP (occurrence: JP)
  Receive Date: 20210416
  Receipt Date: 20220805
  Transmission Date: 20221027
  Serious: Yes (Hospitalization, Other)
  Sender: FDA-Public Use
  Company Number: JP-ONO-2021JP009087

PATIENT
  Age: 62 Year
  Sex: Male
  Weight: 88.2 kg

DRUGS (8)
  1. BRAFTOVI [Suspect]
     Active Substance: ENCORAFENIB
     Indication: Colon cancer
     Dosage: 300 MG
     Route: 048
     Dates: start: 20210222, end: 20210314
  2. BRAFTOVI [Suspect]
     Active Substance: ENCORAFENIB
     Dosage: 300 MG
     Route: 048
     Dates: start: 20210322, end: 20210404
  3. BRAFTOVI [Suspect]
     Active Substance: ENCORAFENIB
     Dosage: 300 MG
     Route: 048
     Dates: start: 20210513, end: 20210804
  4. MEKTOVI [Suspect]
     Active Substance: BINIMETINIB
     Indication: Colon cancer
     Dosage: 90 MG, 1X/DAY
     Route: 048
     Dates: start: 20210222, end: 20210314
  5. MEKTOVI [Suspect]
     Active Substance: BINIMETINIB
     Dosage: 90 MG, 1X/DAY
     Route: 048
     Dates: start: 20210322, end: 20210404
  6. ERBITUX [Suspect]
     Active Substance: CETUXIMAB
     Indication: Colon cancer
     Dosage: 400 MG/M2
     Route: 065
     Dates: start: 20210222, end: 20210222
  7. ERBITUX [Suspect]
     Active Substance: CETUXIMAB
     Indication: Colon cancer
     Dosage: 250 MG/M2
     Route: 065
     Dates: start: 20210301, end: 20210329
  8. ERBITUX [Suspect]
     Active Substance: CETUXIMAB
     Dosage: 250 MG/M2
     Route: 065
     Dates: start: 20210513, end: 20210804

REACTIONS (6)
  - Renal impairment [Recovering/Resolving]
  - Renal artery stenosis [Recovering/Resolving]
  - Renal vein stenosis [Recovering/Resolving]
  - Inferior vena cava stenosis [Recovering/Resolving]
  - Serous retinal detachment [Recovering/Resolving]
  - Palmar-plantar erythrodysaesthesia syndrome [Recovered/Resolved]

NARRATIVE: CASE EVENT DATE: 20210315
